FAERS Safety Report 8915246 (Version 1)
Quarter: 2012Q4

REPORT INFORMATION
  Report Type: Report from Study
  Country: BE (occurrence: BE)
  Receive Date: 20121119
  Receipt Date: 20121119
  Transmission Date: 20130627
  Serious: Yes (Hospitalization)
  Sender: FDA-Public Use
  Company Number: BE-TEVA-369934ISR

PATIENT
  Age: 63 Year
  Sex: Female
  Weight: 72 kg

DRUGS (12)
  1. OXALIPLATIN [Suspect]
     Indication: COLON CANCER
     Route: 042
     Dates: start: 20120905, end: 20120905
  2. OXALIPLATIN [Suspect]
     Dates: start: 20121002
  3. FOLINIC ACID [Suspect]
     Indication: COLON CANCER
     Route: 042
     Dates: start: 20120905, end: 20120905
  4. FOLINIC ACID [Suspect]
     Dates: start: 20121002
  5. FLUOROURACIL [Suspect]
     Indication: COLON CANCER
     Dosage: 361.1429 Milligram Daily;
     Route: 042
     Dates: start: 20120905, end: 20120907
  6. FLUOROURACIL [Suspect]
     Dates: start: 20121002
  7. TIVOZANIB [Suspect]
     Indication: COLON CANCER
     Dosage: 1.5 Milligram Daily;
     Route: 048
     Dates: start: 20120905, end: 20120908
  8. TENORETIC [Concomitant]
  9. METFORMAX [Concomitant]
     Dates: start: 20120227
  10. ENALAPRIL [Concomitant]
  11. GLICLAZIDE [Concomitant]
  12. PANTOMED [Concomitant]

REACTIONS (3)
  - Atrial fibrillation [Recovered/Resolved]
  - Depression [Not Recovered/Not Resolved]
  - Hyperthyroidism [Recovering/Resolving]
